FAERS Safety Report 6149341-0 (Version None)
Quarter: 2009Q2

REPORT INFORMATION
  Report Type: 
  Country: None (occurrence: None)
  Receive Date: 20090406
  Receipt Date: 20090406
  Transmission Date: 20091009
  Serious: Yes (Other)
  Sender: FDA-Public Use
  Company Number: None

PATIENT
  Sex: Male
  Weight: 53 kg

DRUGS (12)
  1. RITUXIMAB CONCENTRATE FOR SOLUTION FOR INFUSION [Suspect]
     Indication: FOCAL SEGMENTAL GLOMERULOSCLEROSIS
     Dosage: 375 MG/KG IV - 4 DOSES
     Route: 042
     Dates: start: 20090302
  2. RITUXIMAB CONCENTRATE FOR SOLUTION FOR INFUSION [Suspect]
     Indication: FOCAL SEGMENTAL GLOMERULOSCLEROSIS
     Dosage: 375 MG/KG IV - 4 DOSES
     Route: 042
     Dates: start: 20090306
  3. RITUXIMAB CONCENTRATE FOR SOLUTION FOR INFUSION [Suspect]
     Indication: FOCAL SEGMENTAL GLOMERULOSCLEROSIS
     Dosage: 375 MG/KG IV - 4 DOSES
     Route: 042
     Dates: start: 20090313
  4. RITUXIMAB CONCENTRATE FOR SOLUTION FOR INFUSION [Suspect]
     Indication: FOCAL SEGMENTAL GLOMERULOSCLEROSIS
     Dosage: 375 MG/KG IV - 4 DOSES
     Route: 042
     Dates: start: 20090320
  5. LISINOPRIL [Concomitant]
  6. SPIROLACTONE [Concomitant]
  7. DIOVAN [Concomitant]
  8. PREDNISONE [Concomitant]
  9. SINGULAIR [Concomitant]
  10. TUMS [Concomitant]
  11. MULTI-VITAMIN [Concomitant]
  12. FLAGYL [Concomitant]

REACTIONS (4)
  - ABDOMINAL PAIN [None]
  - BLOOD IMMUNOGLOBULIN G DECREASED [None]
  - CLOSTRIDIAL INFECTION [None]
  - DIARRHOEA [None]
